FAERS Safety Report 20846126 (Version 1)
Quarter: 2022Q2

REPORT INFORMATION
  Report Type: Spontaneous
  Country: US (occurrence: US)
  Receive Date: 20220518
  Receipt Date: 20220518
  Transmission Date: 20220720
  Serious: No
  Sender: FDA-Public Use
  Company Number: US-PFIZER INC-202200092414

PATIENT
  Age: 51 Year

DRUGS (2)
  1. DILANTIN [Suspect]
     Active Substance: PHENYTOIN
     Indication: Epilepsy
     Dosage: UNK
  2. VALIUM [Suspect]
     Active Substance: DIAZEPAM
     Indication: Epilepsy
     Dosage: UNK

REACTIONS (1)
  - Dental caries [Unknown]
